FAERS Safety Report 12328114 (Version 3)
Quarter: 2016Q2

REPORT INFORMATION
  Report Type: Spontaneous
  Country: MX (occurrence: MX)
  Receive Date: 20160503
  Receipt Date: 20160624
  Transmission Date: 20160815
  Serious: Yes (Death, Hospitalization, Disabling, Other)
  Sender: FDA-Public Use
  Company Number: MX-CELGENEUS-MEX-2016047029

PATIENT
  Age: 71 Year
  Sex: Female
  Weight: 48.9 kg

DRUGS (3)
  1. VIDAZA [Suspect]
     Active Substance: AZACITIDINE
     Indication: MYELODYSPLASTIC SYNDROME
     Route: 058
     Dates: start: 20151030, end: 20151105
  2. VIDAZA [Suspect]
     Active Substance: AZACITIDINE
     Indication: THROMBOCYTOPENIA
  3. INSULIN PORCINE PROTAMINE ZINC [Concomitant]
     Indication: PRODUCT USED FOR UNKNOWN INDICATION
     Route: 065
     Dates: start: 2002

REACTIONS (5)
  - Febrile neutropenia [Recovered/Resolved]
  - Pneumonia [Fatal]
  - Febrile neutropenia [Recovered/Resolved]
  - Hip fracture [Not Recovered/Not Resolved]
  - Femur fracture [Recovered/Resolved with Sequelae]

NARRATIVE: CASE EVENT DATE: 20151031
